FAERS Safety Report 5309620-3 (Version None)
Quarter: 2007Q2

REPORT INFORMATION
  Report Type: 
  Country: None (occurrence: None)
  Receive Date: 20070427
  Receipt Date: 20070417
  Transmission Date: 20071010
  Serious: Yes (Hospitalization, Other)
  Sender: FDA-Public Use
  Company Number: GB-JNJFOC-20061105224

PATIENT
  Sex: Female
  Weight: 94 kg

DRUGS (8)
  1. REMICADE [Suspect]
     Indication: RHEUMATOID ARTHRITIS
     Route: 042
  2. METHOTREXATE [Suspect]
     Indication: IMMUNOSUPPRESSION
     Route: 065
  3. DICLOFENAC [Concomitant]
     Route: 065
  4. FOLIC ACID [Concomitant]
     Route: 065
  5. TRAMADOL HCL [Concomitant]
     Route: 065
  6. ORAL CONTRACEPTIVE PILL [Concomitant]
  7. AMPICILLIN [Concomitant]
  8. FLOXACILLIN SODIUM [Concomitant]

REACTIONS (2)
  - INDURATION [None]
  - STAPHYLOCOCCAL ABSCESS [None]
